FAERS Safety Report 8961172 (Version 1)
Quarter: 2012Q4

REPORT INFORMATION
  Report Type: 
  Country: NO (occurrence: NO)
  Receive Date: 20121212
  Receipt Date: 20121212
  Transmission Date: 20130627
  Serious: Yes (Life-Threatening, Hospitalization)
  Sender: FDA-Public Use
  Company Number: NO-GLAXOSMITHKLINE-B0821994A

PATIENT
  Age: 55 Year
  Sex: Male

DRUGS (7)
  1. LAMOTRIGINE [Suspect]
     Indication: BIPOLAR DISORDER
     Dosage: 100MG Twice per day
     Route: 048
     Dates: start: 20120327, end: 20120423
  2. NEXIUM [Suspect]
     Indication: PRODUCT USED FOR UNKNOWN INDICATION
     Dosage: 20MG Per day
     Route: 048
     Dates: start: 20120417
  3. DOXYCYCLINE [Suspect]
     Indication: PRODUCT USED FOR UNKNOWN INDICATION
     Dosage: 200MG Per day
     Route: 048
     Dates: start: 20120421
  4. LORATADINE [Concomitant]
     Route: 065
  5. IMOVANE [Concomitant]
     Route: 065
  6. VIMOVO [Concomitant]
     Route: 048
     Dates: start: 20111130
  7. VENTOLINE [Concomitant]
     Route: 065

REACTIONS (3)
  - Stevens-Johnson syndrome [Recovering/Resolving]
  - Toxic epidermal necrolysis [Recovering/Resolving]
  - Angioedema [Recovering/Resolving]
